FAERS Safety Report 14094817 (Version 2)
Quarter: 2018Q2

REPORT INFORMATION
  Report Type: Report from Study
  Country: US (occurrence: US)
  Receive Date: 20171016
  Receipt Date: 20180618
  Transmission Date: 20180711
  Serious: Yes (Hospitalization)
  Sender: FDA-Public Use
  Company Number: US-VERTEX PHARMACEUTICALS-2017-001040

PATIENT
  Age: 23 Year
  Sex: Male

DRUGS (12)
  1. ORKAMBI [Suspect]
     Active Substance: IVACAFTOR\LUMACAFTOR
     Indication: CYSTIC FIBROSIS
     Dosage: 2 DOSAGE FORM, BID
     Route: 048
     Dates: start: 20160818, end: 20180411
  2. LYRICA [Concomitant]
     Active Substance: PREGABALIN
  3. CLONAZEPAM. [Concomitant]
     Active Substance: CLONAZEPAM
  4. CREON [Concomitant]
     Active Substance: PANCRELIPASE AMYLASE\PANCRELIPASE LIPASE\PANCRELIPASE PROTEASE
  5. VENTOLIN [Concomitant]
     Active Substance: ALBUTEROL SULFATE
  6. FLUTICASONE. [Concomitant]
     Active Substance: FLUTICASONE
     Dosage: 50 ?G
     Route: 045
  7. BRIVIACT [Concomitant]
     Active Substance: BRIVARACETAM
  8. NORDITROPIN [Concomitant]
     Active Substance: SOMATROPIN
  9. PULMOZYME [Concomitant]
     Active Substance: DORNASE ALFA
     Route: 055
  10. TESTOSTERONE. [Concomitant]
     Active Substance: TESTOSTERONE
  11. OMEPRAZOLE. [Concomitant]
     Active Substance: OMEPRAZOLE
  12. A-HYDROCORT [Concomitant]
     Active Substance: HYDROCORTISONE SODIUM SUCCINATE

REACTIONS (4)
  - Seizure [Recovered/Resolved]
  - Contusion [Not Recovered/Not Resolved]
  - Fall [Unknown]
  - Head injury [Unknown]

NARRATIVE: CASE EVENT DATE: 20170822
